FAERS Safety Report 17766718 (Version 1)
Quarter: 2020Q2

REPORT INFORMATION
  Report Type: Spontaneous
  Country: US (occurrence: US)
  Receive Date: 20200511
  Receipt Date: 20200511
  Transmission Date: 20200714
  Serious: Yes (Other)
  Sender: FDA-Public Use
  Company Number: US-PRINSTON PHARMACEUTICAL INC.-2020PRN00158

PATIENT
  Sex: Male

DRUGS (4)
  1. HYDROCHLOROTHIAZIDE. [Suspect]
     Active Substance: HYDROCHLOROTHIAZIDE
     Indication: NEPHROLITHIASIS
     Dosage: UNK
     Dates: start: 202002, end: 2020
  2. VITAMIN D [Concomitant]
     Active Substance: VITAMIN D NOS
     Dosage: 800 IU, 1X/DAY
     Dates: start: 201903
  3. VITAMIN K3 [Concomitant]
     Dosage: 1 MG, 1X/DAY
     Dates: start: 201903
  4. TAMSULOSIN [Suspect]
     Active Substance: TAMSULOSIN
     Indication: NEPHROLITHIASIS
     Dosage: UNK
     Dates: start: 202002

REACTIONS (3)
  - Arrhythmia [Unknown]
  - Tachycardia [Unknown]
  - Dizziness [Unknown]

NARRATIVE: CASE EVENT DATE: 2020
